FAERS Safety Report 20048836 (Version 1)
Quarter: 2021Q4

REPORT INFORMATION
  Report Type: Spontaneous
  Country: US (occurrence: US)
  Receive Date: 20211109
  Receipt Date: 20211109
  Transmission Date: 20220304
  Serious: No
  Sender: FDA-Public Use
  Company Number: US-Accord-208392

PATIENT
  Age: 65 Year
  Sex: Female
  Weight: 96.16 kg

DRUGS (3)
  1. HYDROCHLOROTHIAZIDE [Suspect]
     Active Substance: HYDROCHLOROTHIAZIDE
     Indication: Hypertension
     Dosage: ONCE A DAY,PHARMACY BOTTLE
     Route: 048
  2. Atorvastatin Zydus [Concomitant]
     Indication: Blood cholesterol
     Dosage: ONCE A DAY
     Route: 048
     Dates: start: 202002
  3. BISOPROLOL FUMARATE [Concomitant]
     Active Substance: BISOPROLOL FUMARATE
     Indication: Blood pressure measurement
     Dosage: 6.25 ONCE A DAY
     Route: 048

REACTIONS (5)
  - Rash [Recovered/Resolved]
  - Joint swelling [Recovered/Resolved]
  - Abnormal weight gain [Unknown]
  - Weight decreased [Unknown]
  - Glucose tolerance impaired [Unknown]

NARRATIVE: CASE EVENT DATE: 20200901
